FAERS Safety Report 15225870 (Version 1)
Quarter: 2018Q3

REPORT INFORMATION
  Report Type: Spontaneous
  Country: US (occurrence: US)
  Receive Date: 20180801
  Receipt Date: 20180801
  Transmission Date: 20181010
  Serious: No
  Sender: FDA-Public Use
  Company Number: US-PFIZER INC-2018307273

PATIENT
  Age: 44 Year

DRUGS (1)
  1. LABETALOL HYDROCHLORIDE. [Suspect]
     Active Substance: LABETALOL HYDROCHLORIDE
     Dosage: UNK (SLIGHTLY MORE THAN 300 MG IN A 24 HOUR PERIOD/OVER 300 MG)

REACTIONS (1)
  - Sedation [Unknown]
